FAERS Safety Report 12613475 (Version 1)
Quarter: 2016Q3

REPORT INFORMATION
  Report Type: Spontaneous
  Country: US (occurrence: US)
  Receive Date: 20160802
  Receipt Date: 20160802
  Transmission Date: 20161109
  Serious: No
  Sender: FDA-Public Use
  Company Number: US-BAYER-2016-141559

PATIENT
  Age: 77 Year
  Sex: Female
  Weight: 72.56 kg

DRUGS (1)
  1. CLARITIN [Suspect]
     Active Substance: LORATADINE
     Indication: COUGH
     Dosage: 1 DF, QD
     Route: 048
     Dates: start: 20160716

REACTIONS (3)
  - Product use issue [None]
  - Insomnia [None]
  - Dyspnoea [None]

NARRATIVE: CASE EVENT DATE: 20160716
